FAERS Safety Report 24411487 (Version 1)
Quarter: 2024Q4

REPORT INFORMATION
  Report Type: Spontaneous
  Country: BE (occurrence: BE)
  Receive Date: 20241008
  Receipt Date: 20241008
  Transmission Date: 20250115
  Serious: Yes (Disabling, Other)
  Sender: PFIZER
  Company Number: None

PATIENT
  Age: 30 Year
  Sex: Female
  Weight: 117 kg

DRUGS (8)
  1. EPIRUBICIN HYDROCHLORIDE [Suspect]
     Active Substance: EPIRUBICIN HYDROCHLORIDE
     Dosage: IV 200 MG IN 250 ML NACL 0.9% IN 30 MIN
     Route: 042
     Dates: start: 20240829, end: 20240829
  2. CYCLOPHOSPHAMIDE [Suspect]
     Active Substance: CYCLOPHOSPHAMIDE
     Dosage: 1320 MG IN 250 ML NACL 0,9% IN 30 MIN 4TH TREATMENT OF CHEMOTHERAPY
     Dates: start: 20240829, end: 20240829
  3. DEXAMETHASONE [Concomitant]
     Active Substance: DEXAMETHASONE
     Dosage: IV PERFUSION 4 MG
     Route: 041
     Dates: start: 20240829, end: 20240829
  4. ELIQUIS [Concomitant]
     Active Substance: APIXABAN
     Indication: Thrombophlebitis
     Dosage: MORNING/EVENING
     Dates: start: 20240814
  5. ZIEXTENZO [Concomitant]
     Active Substance: PEGFILGRASTIM-BMEZ
     Indication: Neutropenia
     Dosage: FREQ:{TOTAL};1 INJECTION ON 30/08; 1 DAY AFTER THE 4TH COURSE OF CHEMOTHERAPY (2024/08/29)
     Route: 058
     Dates: start: 20240830
  6. NETUPITANT\PALONOSETRON [Concomitant]
     Active Substance: NETUPITANT\PALONOSETRON
     Dosage: 1 HOUR BEFORE CHEMO
     Route: 048
     Dates: start: 20240829, end: 20240829
  7. DAFALGAN [Concomitant]
     Active Substance: ACETAMINOPHEN
     Dosage: UNK UNK, AS NEEDED
  8. BEFACT FORTE [Concomitant]
     Dosage: 1 DF, 1X/DAY

REACTIONS (8)
  - Haemorrhoids [Unknown]
  - Gastrointestinal motility disorder [Unknown]
  - Headache [Unknown]
  - Asthenia [Recovered/Resolved]
  - Abdominal pain upper [Unknown]
  - Myalgia [Unknown]
  - Neutropenia [Unknown]
  - Pain [Unknown]

NARRATIVE: CASE EVENT DATE: 20240101
